FAERS Safety Report 8767838 (Version 2)
Quarter: 2013Q3

REPORT INFORMATION
  Report Type: Spontaneous
  Country: GB (occurrence: GB)
  Receive Date: 20120904
  Receipt Date: 20130927
  Transmission Date: 20140515
  Serious: Yes (Other)
  Sender: FDA-Public Use
  Company Number: PHHY2012GB074842

PATIENT
  Age: 52 Year
  Sex: Male

DRUGS (2)
  1. LISINOPRIL [Suspect]
     Indication: HYPERTENSION
     Dosage: 10 MG, QD  (AT NIGHT)
     Route: 048
     Dates: start: 20120731, end: 20120801
  2. AMLODIPINE [Concomitant]
     Indication: HYPERTENSION
     Dosage: 5 MG, QD (EACH MORNING)
     Route: 048
     Dates: start: 20120731, end: 20120801

REACTIONS (1)
  - Hallucination [Recovered/Resolved]
